FAERS Safety Report 5051428-0 (Version None)
Quarter: 2006Q3

REPORT INFORMATION
  Report Type: 
  Country: None (occurrence: None)
  Receive Date: 20060714
  Receipt Date: 20060608
  Transmission Date: 20061208
  Serious: Yes (Hospitalization)
  Sender: FDA-Public Use
  Company Number: PHNU2006DE02250

PATIENT
  Age: 42 Year
  Sex: Female
  Weight: 74 kg

DRUGS (7)
  1. LAMOTRIGINE [Concomitant]
     Dosage: UNK, UNK
     Route: 048
     Dates: start: 20060601
  2. SOLIAN [Concomitant]
     Indication: SCHIZOPHRENIA
     Dosage: 200 MG/DAY
     Dates: start: 20020216, end: 20060531
  3. TRUXAL [Concomitant]
     Indication: SCHIZOPHRENIA
     Dosage: 150 MG/DAY
     Dates: start: 20020101, end: 20060608
  4. DIPIPERON [Concomitant]
     Dates: start: 20060601
  5. DIAZEPAM [Concomitant]
     Dates: start: 20060601
  6. BELLADONNYSAT [Concomitant]
     Route: 048
     Dates: start: 19930101, end: 20060618
  7. LEPONEX [Suspect]
     Indication: SCHIZOPHRENIA, PARANOID TYPE
     Dosage: UP TO 500 MG/DAY
     Route: 048
     Dates: start: 19930101, end: 20060618

REACTIONS (5)
  - DRUG INTERACTION [None]
  - ELECTROENCEPHALOGRAM ABNORMAL [None]
  - NEUTROPHIL COUNT DECREASED [None]
  - SALIVARY HYPERSECRETION [None]
  - WHITE BLOOD CELL COUNT DECREASED [None]
